FAERS Safety Report 24755094 (Version 2)
Quarter: 2025Q1

REPORT INFORMATION
  Report Type: Report from Study
  Country: JP (occurrence: JP)
  Receive Date: 20241219
  Receipt Date: 20250319
  Transmission Date: 20250408
  Serious: Yes (Other)
  Sender: ALEXION PHARMACEUTICALS
  Company Number: JP-ASTRAZENECA-240141159_032420_P_1

PATIENT
  Age: 40 Year
  Weight: 62 kg

DRUGS (1)
  1. TEZEPELUMAB [Suspect]
     Active Substance: TEZEPELUMAB
     Indication: Asthma

REACTIONS (2)
  - Abdominal pain upper [Unknown]
  - Pneumonia [Unknown]
